FAERS Safety Report 8513168-2 (Version None)
Quarter: 2012Q3

REPORT INFORMATION
  Report Type: 
  Country: None (occurrence: None)
  Receive Date: 20120716
  Receipt Date: 20120710
  Transmission Date: 20120928
  Serious: Yes (Hospitalization, Other)
  Sender: FDA-Public Use
  Company Number: US-PFIZER INC-2012165689

PATIENT
  Sex: Female
  Weight: 68.027 kg

DRUGS (1)
  1. REVATIO [Suspect]
     Indication: LUNG DISORDER
     Dosage: 20 MG, 3X/DAY
     Route: 048
     Dates: start: 20120101

REACTIONS (3)
  - POISONING [None]
  - PLATELET COUNT DECREASED [None]
  - APPENDICITIS PERFORATED [None]
